FAERS Safety Report 20640969 (Version 1)
Quarter: 2022Q1

REPORT INFORMATION
  Report Type: Report from Study
  Country: FR (occurrence: FR)
  Receive Date: 20220327
  Receipt Date: 20220327
  Transmission Date: 20220423
  Serious: Yes (Death)
  Sender: FDA-Public Use
  Company Number: FR-VER-202200022

PATIENT
  Age: 74 Year
  Sex: Male

DRUGS (15)
  1. TRIPTORELIN [Suspect]
     Active Substance: TRIPTORELIN
     Indication: Prostate cancer
     Route: 065
  2. ATORVASTATIN [Concomitant]
     Active Substance: ATORVASTATIN
     Indication: Hypertension
     Dosage: 40 (UNITS NOT REPORTED), ONE PER DAY (1 D)
     Route: 048
  3. ATORVASTATIN [Concomitant]
     Active Substance: ATORVASTATIN
     Indication: Stent placement
     Dosage: 40 (UNITS NOT REPORTED), ONE PER DAY (1 D)
     Route: 048
  4. ATENOLOL [Concomitant]
     Active Substance: ATENOLOL
     Indication: Hypertension
     Dosage: 50 (UNITS NOT REPORTED), 1.5 PER DAY
     Route: 065
  5. ATENOLOL [Concomitant]
     Active Substance: ATENOLOL
     Indication: Stent placement
     Dosage: 50 (UNITS NOT REPORTED), 1.5 PER DAY
     Route: 065
  6. ERLEADA [Concomitant]
     Active Substance: APALUTAMIDE
     Indication: Neoplasm malignant
     Dosage: 4 PER DAY (1 D)
     Route: 065
     Dates: start: 20210707
  7. TOVIAZ [Concomitant]
     Active Substance: FESOTERODINE FUMARATE
     Dosage: 4 (UNITS NOT REPORTED), ONE PER DAY (1 D)
     Route: 065
  8. SILODOSIN [Concomitant]
     Active Substance: SILODOSIN
     Indication: Hypertension
     Dosage: ??8 (UNITS NOT REPORTED), ONE PER DAY (1 D)
     Route: 065
  9. SILODOSIN [Concomitant]
     Active Substance: SILODOSIN
     Indication: Stent placement
     Dosage: ??8 (UNITS NOT REPORTED), ONE PER DAY (1 D)
     Route: 065
  10. JANUMET [Concomitant]
     Active Substance: METFORMIN HYDROCHLORIDE\SITAGLIPTIN PHOSPHATE
     Indication: Diabetes mellitus
     Dosage: 50/ 100 (UNITS NOT REPORTED), TWO PER DAY (1 D)
     Route: 065
  11. COVERAM [Concomitant]
     Active Substance: AMLODIPINE\PERINDOPRIL
     Indication: Hypertension
     Dosage: ??5/5 (UNITS NOT REPORTED), ONE PER DAY (1 D)
     Route: 065
  12. COVERAM [Concomitant]
     Active Substance: AMLODIPINE\PERINDOPRIL
     Indication: Stent placement
     Dosage: ??5/5 (UNITS NOT REPORTED), ONE PER DAY (1 D)
     Route: 065
  13. PLAVIX [Concomitant]
     Active Substance: CLOPIDOGREL BISULFATE
     Indication: Hypertension
     Dosage: ??75 (UNITS NOT REPORTED), ONE PER DAY (1 D)
     Route: 065
  14. PLAVIX [Concomitant]
     Active Substance: CLOPIDOGREL BISULFATE
     Indication: Stent placement
     Dosage: ??75 (UNITS NOT REPORTED), ONE PER DAY (1 D)
     Route: 065
  15. GLICLAZIDE [Concomitant]
     Active Substance: GLICLAZIDE
     Indication: Diabetes mellitus
     Dosage: ??30 (UNITS NOT REPORTED), ONE PER DAY (1 D)
     Route: 065

REACTIONS (1)
  - Myocardial infarction [Fatal]
